FAERS Safety Report 14272653 (Version 5)
Quarter: 2019Q1

REPORT INFORMATION
  Report Type: Spontaneous
  Country: US (occurrence: US)
  Receive Date: 20171211
  Receipt Date: 20190107
  Transmission Date: 20190417
  Serious: Yes (Other)
  Sender: FDA-Public Use
  Company Number: US-OTSUKA-2017_025081

PATIENT
  Age: 62 Year
  Sex: Male

DRUGS (11)
  1. CITALOPRAM [Concomitant]
     Active Substance: CITALOPRAM HYDROBROMIDE
     Indication: PRODUCT USED FOR UNKNOWN INDICATION
     Dosage: 20 MG, QD
     Route: 065
     Dates: start: 20121005
  2. MODAFINIL. [Concomitant]
     Active Substance: MODAFINIL
     Indication: PRODUCT USED FOR UNKNOWN INDICATION
     Dosage: 200 MG, UNK
     Route: 065
  3. RISPERIDONE. [Concomitant]
     Active Substance: RISPERIDONE
     Indication: PRODUCT USED FOR UNKNOWN INDICATION
     Dosage: UNK
     Route: 065
  4. LEVOTHYROXINE. [Concomitant]
     Active Substance: LEVOTHYROXINE
     Indication: HYPOTHYROIDISM
     Dosage: UNK
     Route: 065
     Dates: start: 20030501
  5. ATORVASTATIN [Concomitant]
     Active Substance: ATORVASTATIN
     Indication: HYPOCHOLESTEROLAEMIA
     Dosage: UNK
     Route: 065
     Dates: start: 20090603
  6. WELLBUTRIN [Concomitant]
     Active Substance: BUPROPION HYDROCHLORIDE
     Indication: PRODUCT USED FOR UNKNOWN INDICATION
     Dosage: 150 MG, QD
     Route: 065
     Dates: start: 20050405
  7. WELLBUTRIN [Concomitant]
     Active Substance: BUPROPION HYDROCHLORIDE
     Dosage: 300 MG, QD
     Route: 065
  8. CITALOPRAM [Concomitant]
     Active Substance: CITALOPRAM HYDROBROMIDE
     Dosage: 40 MG, QD
     Route: 065
  9. AMBIEN CR [Concomitant]
     Active Substance: ZOLPIDEM TARTRATE
     Indication: PRODUCT USED FOR UNKNOWN INDICATION
     Dosage: 12.5 MG, UNK
     Route: 065
  10. ABILIFY [Suspect]
     Active Substance: ARIPIPRAZOLE
     Indication: MAJOR DEPRESSION
     Dosage: 2 MG, QD
     Route: 065
     Dates: start: 20130121, end: 20130902
  11. ABILIFY [Suspect]
     Active Substance: ARIPIPRAZOLE
     Indication: BIPOLAR I DISORDER

REACTIONS (29)
  - Emotional distress [Unknown]
  - Hypersomnia [Unknown]
  - Restlessness [Unknown]
  - Economic problem [Unknown]
  - Affective disorder [Unknown]
  - Sexual dysfunction [Unknown]
  - Anxiety [Unknown]
  - Injury [Unknown]
  - Agitation [Unknown]
  - Suicidal ideation [Unknown]
  - Spinal osteoarthritis [Unknown]
  - Eating disorder [Unknown]
  - Divorced [Unknown]
  - Intervertebral disc degeneration [Unknown]
  - Obsessive-compulsive disorder [Unknown]
  - Impulsive behaviour [Unknown]
  - Akathisia [Recovered/Resolved]
  - Suicide attempt [Unknown]
  - Paranoia [Unknown]
  - Depressed mood [Unknown]
  - Hypersexuality [Unknown]
  - Weight increased [Unknown]
  - Cervical spinal stenosis [Unknown]
  - Attention deficit/hyperactivity disorder [Unknown]
  - Brain injury [Unknown]
  - Psychosexual disorder [Unknown]
  - Neuropsychiatric symptoms [Unknown]
  - Condition aggravated [Not Recovered/Not Resolved]
  - Gambling disorder [Not Recovered/Not Resolved]

NARRATIVE: CASE EVENT DATE: 2013
